FAERS Safety Report 7510876-7 (Version None)
Quarter: 2011Q2

REPORT INFORMATION
  Report Type: 
  Country: None (occurrence: None)
  Receive Date: 20110531
  Receipt Date: 20110520
  Transmission Date: 20111010
  Serious: No
  Sender: FDA-Public Use
  Company Number: US-BIOGENIDEC-2011BI019269

PATIENT
  Age: 56 Year
  Sex: Female

DRUGS (1)
  1. TYSABRI [Suspect]
     Indication: MULTIPLE SCLEROSIS
     Route: 042
     Dates: start: 20110419

REACTIONS (7)
  - PAIN [None]
  - ORAL MUCOSAL ERUPTION [None]
  - DYSPNOEA [None]
  - SINUS DISORDER [None]
  - HEADACHE [None]
  - MYALGIA [None]
  - RESPIRATORY DISORDER [None]
